FAERS Safety Report 5763779-2 (Version None)
Quarter: 2008Q2

REPORT INFORMATION
  Report Type: 
  Country: None (occurrence: None)
  Receive Date: 20080602
  Receipt Date: 20070518
  Transmission Date: 20081010
  Serious: Yes (Life-Threatening)
  Sender: FDA-Public Use
  Company Number: APP200700088

PATIENT
  Age: 65 Year
  Sex: Male

DRUGS (1)
  1. PROTAMINE SULFATE [Suspect]
     Indication: HEPARIN NEUTRALISATION THERAPY
     Dosage: 50 MG, ONCE, INTRAVENOUS
     Route: 042
     Dates: start: 20070418, end: 20070418

REACTIONS (1)
  - HYPERSENSITIVITY [None]
